FAERS Safety Report 19439484 (Version 2)
Quarter: 2021Q2

REPORT INFORMATION
  Report Type: Report from Study
  Country: None (occurrence: US)
  Receive Date: 20210618
  Receipt Date: 20210629
  Transmission Date: 20210717
  Serious: Yes (Other)
  Sender: FDA-Public Use
  Company Number: US-ABBVIE-21K-163-3952808-00

PATIENT
  Age: 62 Year
  Sex: Male

DRUGS (2)
  1. DUOPA [Suspect]
     Active Substance: CARBIDOPA\LEVODOPA
  2. DUOPA [Suspect]
     Active Substance: CARBIDOPA\LEVODOPA
     Indication: PRODUCT USED FOR UNKNOWN INDICATION
     Route: 050
     Dates: start: 20160219, end: 20210614

REACTIONS (7)
  - Feeling abnormal [Unknown]
  - Device occlusion [Unknown]
  - Oral surgery [Recovered/Resolved]
  - Hypertension [Unknown]
  - Device dislocation [Not Recovered/Not Resolved]
  - Malaise [Unknown]
  - Post procedural complication [Unknown]

NARRATIVE: CASE EVENT DATE: 20210614
